FAERS Safety Report 20628930 (Version 1)
Quarter: 2022Q1

REPORT INFORMATION
  Report Type: Report from Study
  Country: US (occurrence: US)
  Receive Date: 20220323
  Receipt Date: 20220323
  Transmission Date: 20220423
  Serious: Yes (Other)
  Sender: FDA-Public Use
  Company Number: US-TEVA-2022-US-2010920

PATIENT
  Age: 14 Year
  Sex: Female

DRUGS (1)
  1. CLARAVIS [Suspect]
     Active Substance: ISOTRETINOIN
     Route: 065
     Dates: start: 20201219, end: 20210303

REACTIONS (3)
  - Emotional disorder [Unknown]
  - Attention deficit hyperactivity disorder [Unknown]
  - Oppositional defiant disorder [Unknown]

NARRATIVE: CASE EVENT DATE: 20210304
